FAERS Safety Report 17433835 (Version 1)
Quarter: 2020Q1

REPORT INFORMATION
  Report Type: Spontaneous
  Country: US (occurrence: US)
  Receive Date: 20200218
  Receipt Date: 20200218
  Transmission Date: 20200409
  Serious: Yes (Hospitalization)
  Sender: FDA-Public Use
  Company Number: None

PATIENT
  Age: 58 Year
  Sex: Male
  Weight: 78.75 kg

DRUGS (1)
  1. CHLORHEXIDINE GLUCONATE. [Suspect]
     Active Substance: CHLORHEXIDINE GLUCONATE

REACTIONS (9)
  - Headache [None]
  - Shock [None]
  - Swelling face [None]
  - Feeling abnormal [None]
  - Urticaria [None]
  - Hyperventilation [None]
  - Heart rate irregular [None]
  - Head discomfort [None]
  - Tremor [None]

NARRATIVE: CASE EVENT DATE: 20200217
